FAERS Safety Report 8375806-7 (Version None)
Quarter: 2012Q2

REPORT INFORMATION
  Report Type: 
  Country: None (occurrence: None)
  Receive Date: 20120518
  Receipt Date: 20120518
  Transmission Date: 20120825
  Serious: Yes (Other)
  Sender: FDA-Public Use
  Company Number: None

PATIENT
  Sex: Male
  Weight: 87 kg

DRUGS (1)
  1. PAZOPANIB [Suspect]
     Indication: RENAL CELL CARCINOMA
     Dosage: 800 MG PO ONCE DAILY
     Route: 048
     Dates: start: 20120319, end: 20120516

REACTIONS (1)
  - HEPATIC FUNCTION ABNORMAL [None]
